FAERS Safety Report 7432063-3 (Version None)
Quarter: 2011Q1

REPORT INFORMATION
  Report Type: 
  Country: None (occurrence: None)
  Receive Date: 20110302
  Receipt Date: 20101129
  Transmission Date: 20110831
  Serious: No
  Sender: FDA-Public Use
  Company Number: 020704

PATIENT
  Sex: Female
  Weight: 72.6 kg

DRUGS (12)
  1. CIMZIA [Suspect]
     Indication: CROHN'S DISEASE
     Dosage: 400 MG 1X/4 WEEKS SUBCUTANEOUS
     Route: 058
     Dates: start: 20100826
  2. LIPITOR [Concomitant]
  3. RESTASIS [Concomitant]
  4. PAXIL [Concomitant]
  5. LUNESTA [Concomitant]
  6. METHOTREXATE [Concomitant]
  7. PROPRANOLOL [Concomitant]
  8. SEROQUEL [Concomitant]
  9. AMBIEN [Concomitant]
  10. NEURONTIN [Concomitant]
  11. ATIVAN [Concomitant]
  12. PREMPRO [Concomitant]

REACTIONS (5)
  - HEARING IMPAIRED [None]
  - TINNITUS [None]
  - ABDOMINAL PAIN [None]
  - DRUG INEFFECTIVE [None]
  - OEDEMA PERIPHERAL [None]
